FAERS Safety Report 7489934-1 (Version None)
Quarter: 2011Q2

REPORT INFORMATION
  Report Type: 
  Country: None (occurrence: None)
  Receive Date: 20110519
  Receipt Date: 20110516
  Transmission Date: 20111010
  Serious: Yes (Death, Hospitalization)
  Sender: FDA-Public Use
  Company Number: US-BAYER-2011-042064

PATIENT
  Age: 29 Year
  Sex: Female

DRUGS (1)
  1. YASMIN [Suspect]
     Indication: PRODUCT USED FOR UNKNOWN INDICATION
     Dosage: UNK
     Dates: start: 20040201, end: 20060106

REACTIONS (10)
  - BRAIN OEDEMA [None]
  - CENTRAL NERVOUS SYSTEM LESION [None]
  - CIRCULATORY COLLAPSE [None]
  - HYPOXIC-ISCHAEMIC ENCEPHALOPATHY [None]
  - PULMONARY EMBOLISM [None]
  - DYSPNOEA [None]
  - CARDIO-RESPIRATORY ARREST [None]
  - CARDIAC ARREST [None]
  - METABOLIC ENCEPHALOPATHY [None]
  - CUBITAL TUNNEL SYNDROME [None]
